FAERS Safety Report 16291006 (Version 1)
Quarter: 2019Q2

REPORT INFORMATION
  Report Type: Spontaneous
  Country: AU (occurrence: AU)
  Receive Date: 20190509
  Receipt Date: 20190509
  Transmission Date: 20190711
  Serious: Yes (Other)
  Sender: FDA-Public Use
  Company Number: AU-PFIZER INC-2019195341

PATIENT
  Age: 30 Year
  Sex: Male

DRUGS (4)
  1. LURASIDONE [Suspect]
     Active Substance: LURASIDONE
     Dosage: 120 MG, 1X/DAY (AT NIGHT)
  2. OLANZAPINE. [Suspect]
     Active Substance: OLANZAPINE
     Dosage: 10 MG, 2X/DAY (BD)
  3. SODIUM VALPROATE [Suspect]
     Active Substance: VALPROATE SODIUM
     Dosage: 1000 MG, 2X/DAY
  4. DIAZEPAM. [Suspect]
     Active Substance: DIAZEPAM
     Dosage: 5 MG, BD PRN

REACTIONS (4)
  - Hallucination, auditory [Unknown]
  - Suicidal ideation [Unknown]
  - Depressed mood [Unknown]
  - Intentional self-injury [Unknown]

NARRATIVE: CASE EVENT DATE: 2018
